FAERS Safety Report 4409311-7 (Version None)
Quarter: 2004Q3

REPORT INFORMATION
  Report Type: 
  Country: None (occurrence: None)
  Receive Date: 20040722
  Receipt Date: 20040709
  Transmission Date: 20050211
  Serious: Yes (Other)
  Sender: FDA-Public Use
  Company Number: 2004048809

PATIENT
  Sex: Male

DRUGS (2)
  1. MINIPRESS [Suspect]
     Indication: HYPERTENSION
  2. ANTIHYPERTENSIVES (ANTIHYPERTENSIVES) [Concomitant]

REACTIONS (6)
  - BALANCE DISORDER [None]
  - ERECTILE DYSFUNCTION [None]
  - HEART VALVE REPLACEMENT [None]
  - UNEXPECTED THERAPEUTIC DRUG EFFECT [None]
  - VASCULAR OPERATION [None]
  - WEIGHT DECREASED [None]
